FAERS Safety Report 4617222-7 (Version None)
Quarter: 2005Q1

REPORT INFORMATION
  Report Type: 
  Country: None (occurrence: None)
  Receive Date: 20050323
  Receipt Date: 20041115
  Transmission Date: 20050727
  Serious: Yes (Hospitalization)
  Sender: FDA-Public Use
  Company Number: US-SANOFI-SYNTHELABO-F01200403625

PATIENT
  Sex: Male
  Weight: 83.9 kg

DRUGS (20)
  1. OXALIPLATIN [Suspect]
     Indication: NON-SMALL CELL LUNG CANCER
     Route: 042
     Dates: start: 20041110, end: 20041110
  2. GEMCITABINE [Suspect]
     Route: 042
     Dates: start: 20041110, end: 20041110
  3. TUSSIONEX [Concomitant]
     Indication: COUGH
     Route: 048
     Dates: start: 20040815
  4. HYDROCODONE BITARTRATE [Concomitant]
     Indication: BACK PAIN
     Route: 048
     Dates: start: 20041015
  5. OXYCODONE HCL [Concomitant]
     Indication: BACK PAIN
     Route: 048
     Dates: start: 20041020, end: 20041022
  6. OXYCODONE HCL [Concomitant]
     Route: 048
     Dates: start: 20041022, end: 20041101
  7. MORPHINE SULFATE [Concomitant]
     Indication: BACK PAIN
     Route: 042
     Dates: start: 20041021, end: 20041021
  8. KYTRIL [Concomitant]
     Indication: NAUSEA
     Route: 042
     Dates: start: 20041021
  9. DECADRON [Concomitant]
     Indication: NAUSEA
     Route: 042
     Dates: start: 20041021
  10. DECADRON [Concomitant]
     Indication: BACK PAIN
     Route: 042
     Dates: start: 20041021
  11. DECADRON [Concomitant]
     Route: 048
     Dates: start: 20041101
  12. DECADRON [Concomitant]
     Route: 048
     Dates: start: 20041101
  13. CALCIUM GLUCONATE [Concomitant]
     Indication: NEUROPATHY
     Route: 042
     Dates: start: 20041021
  14. MAGNESIUM SULFATE [Concomitant]
     Indication: NEUROPATHY
     Route: 042
     Dates: start: 20041021
  15. MILK OF MAGNESIA [Concomitant]
     Indication: CONSTIPATION
     Dosage: 30 ML
     Route: 048
     Dates: start: 20041022
  16. OXYCONTIN [Concomitant]
     Indication: BACK PAIN
     Route: 048
     Dates: start: 20041101
  17. ATIVAN [Concomitant]
     Indication: NAUSEA
     Route: 048
     Dates: start: 20041021
  18. COMPAZINE [Concomitant]
     Indication: NAUSEA
     Route: 048
     Dates: start: 20041021
  19. PROTONIX [Concomitant]
     Indication: ABDOMINAL PAIN UPPER
     Dosage: 40 MG
     Route: 048
     Dates: start: 20041021
  20. VICODIN [Concomitant]

REACTIONS (4)
  - ABASIA [None]
  - ATRIAL FIBRILLATION [None]
  - CHEST PAIN [None]
  - NERVE ROOT COMPRESSION [None]
